FAERS Safety Report 8353595-X (Version None)
Quarter: 2012Q2

REPORT INFORMATION
  Report Type: 
  Country: None (occurrence: None)
  Receive Date: 20120511
  Receipt Date: 20110711
  Transmission Date: 20120825
  Serious: No
  Sender: FDA-Public Use
  Company Number: US-GLAXOSMITHKLINE-A0936873A

PATIENT
  Sex: Female

DRUGS (1)
  1. TYKERB [Suspect]
     Indication: PRODUCT USED FOR UNKNOWN INDICATION
     Dosage: 250MG PER DAY
     Route: 048
     Dates: start: 20110707

REACTIONS (7)
  - PRURITUS [None]
  - FLUID RETENTION [None]
  - OESOPHAGEAL STENOSIS [None]
  - ALOPECIA [None]
  - DYSPNOEA [None]
  - COUGH [None]
  - DYSPHAGIA [None]
